FAERS Safety Report 5084545-X (Version None)
Quarter: 2006Q3

REPORT INFORMATION
  Report Type: 
  Country: None (occurrence: None)
  Receive Date: 20060815
  Receipt Date: 20060807
  Transmission Date: 20061208
  Serious: Yes (Other)
  Sender: FDA-Public Use
  Company Number: SE-2005-018979

PATIENT
  Age: 46 Year
  Sex: Female

DRUGS (1)
  1. YASMIN [Suspect]
     Dosage: 1X21DAYS, ORAL
     Route: 048

REACTIONS (3)
  - CARDIAC DISORDER [None]
  - HEART INJURY [None]
  - THROMBOSIS [None]
